FAERS Safety Report 4780648-5 (Version None)
Quarter: 2005Q3

REPORT INFORMATION
  Report Type: 
  Country: None (occurrence: None)
  Receive Date: 20050926
  Receipt Date: 20050913
  Transmission Date: 20060218
  Serious: Yes (Hospitalization)
  Sender: FDA-Public Use
  Company Number: 2005130189

PATIENT
  Age: 41 Year
  Sex: Female

DRUGS (4)
  1. BEXTRA [Suspect]
     Indication: BACK PAIN
     Dosage: 200 MG (200 MG, 1 IN 1 D)
     Dates: start: 20040716, end: 20040723
  2. BEXTRA [Suspect]
     Indication: PELVIC PAIN
     Dosage: 200 MG (200 MG, 1 IN 1 D)
     Dates: start: 20040716, end: 20040723
  3. AYGESTIN [Concomitant]
  4. TOPROL (METOPROLOL) [Concomitant]

REACTIONS (6)
  - DYSURIA [None]
  - ERYTHEMA MULTIFORME [None]
  - MALAISE [None]
  - NAUSEA [None]
  - STOMATITIS [None]
  - TREATMENT NONCOMPLIANCE [None]
